FAERS Safety Report 5991189-1 (Version None)
Quarter: 2008Q4

REPORT INFORMATION
  Report Type: 
  Country: None (occurrence: None)
  Receive Date: 20081202
  Receipt Date: 20080208
  Transmission Date: 20090506
  Serious: Yes (Disabling, Other)
  Sender: FDA-Public Use
  Company Number: WAES 0802USA02036

PATIENT
  Age: 52 Year
  Sex: Female

DRUGS (1)
  1. FOSAMAX [Suspect]
     Indication: OSTEOPOROSIS
     Dosage: 70 MG/WKY/PO
     Route: 048
     Dates: start: 20030601

REACTIONS (14)
  - ADVERSE EVENT [None]
  - ANXIETY [None]
  - DEPRESSION [None]
  - DIVERTICULITIS [None]
  - DIVERTICULUM [None]
  - EPIGASTRIC DISCOMFORT [None]
  - GALLBLADDER POLYP [None]
  - HAEMATOCHEZIA [None]
  - HYPERTROPHIC ANAL PAPILLA [None]
  - OSTEONECROSIS [None]
  - POLYP COLORECTAL [None]
  - POSTNASAL DRIP [None]
  - SLEEP APNOEA SYNDROME [None]
  - TENDONITIS [None]
